FAERS Safety Report 7946638-6 (Version None)
Quarter: 2011Q4

REPORT INFORMATION
  Report Type: 
  Country: None (occurrence: None)
  Receive Date: 20111129
  Receipt Date: 20110914
  Transmission Date: 20120403
  Serious: Yes (Other)
  Sender: FDA-Public Use
  Company Number: CA-BAYER-2011-113940

PATIENT
  Age: 29 Year
  Sex: Female
  Weight: 60 kg

DRUGS (1)
  1. MIRENA [Suspect]
     Indication: CONTRACEPTION
     Dosage: 20 MCG/24HR, CONT
     Route: 015
     Dates: start: 20070101, end: 20110324

REACTIONS (10)
  - DEPRESSION [None]
  - TACHYPHRENIA [None]
  - HYPOAESTHESIA [None]
  - PANIC ATTACK [None]
  - DIPLOPIA [None]
  - VISION BLURRED [None]
  - DISTURBANCE IN ATTENTION [None]
  - CHILLS [None]
  - NAUSEA [None]
  - ANXIETY [None]
